FAERS Safety Report 13157987 (Version 2)
Quarter: 2017Q1

REPORT INFORMATION
  Report Type: Spontaneous
  Country: US (occurrence: US)
  Receive Date: 20170127
  Receipt Date: 20170313
  Transmission Date: 20170428
  Serious: Yes (Other)
  Sender: FDA-Public Use
  Company Number: US-PFIZER INC-2017034986

PATIENT
  Age: 69 Year
  Sex: Male

DRUGS (2)
  1. SUTENT [Suspect]
     Active Substance: SUNITINIB MALATE
     Indication: RENAL CANCER
     Dosage: 50 MG, CYCLIC (1 CAPSULE BY MOUTH EVERY DAY FOR 28 DAYS THEN 14 DAYS OFF EVERY 6 WEEK TREATMENT)
     Route: 048
     Dates: start: 201608
  2. SUTENT [Suspect]
     Active Substance: SUNITINIB MALATE
     Dosage: 50 MG, CYCLIC (1 CAPSULE BY MOUTH EVERY DAY FOR 28 DAYS THEN 14 DAYS OFF EVERY 6 WEEK TREATMENT)
     Route: 048
     Dates: start: 201608

REACTIONS (8)
  - Decreased appetite [Unknown]
  - Vomiting [Unknown]
  - Cholelithiasis [Unknown]
  - Stomatitis [Unknown]
  - Gastrointestinal disorder [Unknown]
  - Nausea [Unknown]
  - Cholecystitis [Unknown]
  - Enterocolitis [Unknown]
